FAERS Safety Report 14702667 (Version 8)
Quarter: 2019Q1

REPORT INFORMATION
  Report Type: Report from Study
  Country: CA (occurrence: CA)
  Receive Date: 20180402
  Receipt Date: 20190319
  Transmission Date: 20190417
  Serious: Yes (Hospitalization, Other)
  Sender: FDA-Public Use
  Company Number: CA-BRISTOL-MYERS SQUIBB COMPANY-BMS-2017-017486

PATIENT
  Age: 67 Year
  Sex: Female

DRUGS (5)
  1. ABATACEPT [Suspect]
     Active Substance: ABATACEPT
     Indication: RHEUMATOID ARTHRITIS
     Dosage: 750 MG, Q4WK
     Route: 042
  2. ABATACEPT [Suspect]
     Active Substance: ABATACEPT
     Indication: PRODUCT USED FOR UNKNOWN INDICATION
     Dosage: 750 MG, Q4WK
     Route: 042
     Dates: start: 20160628
  3. ABATACEPT [Suspect]
     Active Substance: ABATACEPT
     Indication: PRODUCT USED FOR UNKNOWN INDICATION
     Dosage: 750 MG, UNK
     Route: 042
  4. ABATACEPT [Suspect]
     Active Substance: ABATACEPT
     Indication: PSORIATIC ARTHROPATHY
     Dosage: 750 MG, Q4WK
     Route: 042
     Dates: start: 20131021
  5. ABATACEPT [Suspect]
     Active Substance: ABATACEPT
     Indication: PRODUCT USED FOR UNKNOWN INDICATION
     Dosage: 500 MG, Q4WK
     Route: 042
     Dates: start: 20160628

REACTIONS (20)
  - Ear disorder [Unknown]
  - Concussion [Unknown]
  - Pain in extremity [Unknown]
  - Cerebral haemorrhage [Recovered/Resolved]
  - Myalgia [Recovering/Resolving]
  - Swelling [Unknown]
  - Oedema peripheral [Not Recovered/Not Resolved]
  - Mobility decreased [Unknown]
  - Mass [Unknown]
  - Musculoskeletal pain [Not Recovered/Not Resolved]
  - Seizure [Recovered/Resolved]
  - Asthenia [Unknown]
  - Joint stiffness [Unknown]
  - Joint range of motion decreased [Unknown]
  - Muscle rigidity [Unknown]
  - Musculoskeletal stiffness [Recovering/Resolving]
  - Fall [Recovered/Resolved]
  - Burning sensation [Unknown]
  - Muscular weakness [Recovering/Resolving]
  - Arthralgia [Not Recovered/Not Resolved]

NARRATIVE: CASE EVENT DATE: 20170331
